FAERS Safety Report 5827189-1 (Version None)
Quarter: 2008Q3

REPORT INFORMATION
  Report Type: 
  Country: None (occurrence: None)
  Receive Date: 20080725
  Receipt Date: 20080509
  Transmission Date: 20090109
  Serious: Yes (Hospitalization)
  Sender: FDA-Public Use
  Company Number: 1000000205

PATIENT
  Age: 87 Year
  Sex: Female

DRUGS (10)
  1. CITALOPRAM ORAL SOLUTION (CITALOPRAM HYDROBROMIDE) [Suspect]
     Indication: AGITATION
     Dosage: 5 GTT (5 GTT, 1 IN 1 D), ORAL
     Route: 048
     Dates: start: 20080201, end: 20080411
  2. ASPIRIN [Suspect]
     Indication: PROPHYLAXIS
     Dosage: ORAL
     Route: 048
     Dates: start: 20080301, end: 20080411
  3. DELTACORTENE (10 MILLIGRAM) [Suspect]
     Indication: POLYMYALGIA RHEUMATICA
     Dosage: 10 MG (10 MG, 1 IN 1 D), ORAL
     Route: 048
     Dates: start: 20070401, end: 20080411
  4. LASIX (250 MILLIGRAM) [Concomitant]
  5. CONGESCOR (2.5 MILLIGRAM) [Concomitant]
  6. ALDACTONE (50 MILLIGRAM) [Concomitant]
  7. ZYLORIC (300 MILLIGRAM) [Concomitant]
  8. NEXIUM [Concomitant]
  9. SPIRIVA [Concomitant]
  10. ZIRFOS [Concomitant]

REACTIONS (4)
  - ANAEMIA [None]
  - ATRIAL FIBRILLATION [None]
  - DIVERTICULUM INTESTINAL HAEMORRHAGIC [None]
  - RECTAL HAEMORRHAGE [None]
